FAERS Safety Report 10195950 (Version 3)
Quarter: 2015Q2

REPORT INFORMATION
  Report Type: Spontaneous
  Country: US (occurrence: US)
  Receive Date: 20140527
  Receipt Date: 20150525
  Transmission Date: 20150821
  Serious: Yes (Life-Threatening, Hospitalization)
  Sender: FDA-Public Use
  Company Number: US-JNJFOC-20140507562

PATIENT
  Age: 61 Year
  Sex: Female

DRUGS (16)
  1. MORPHINE [Concomitant]
     Active Substance: MORPHINE
     Indication: INTERVERTEBRAL DISC DEGENERATION
     Dosage: MORE THAN 15 YEARS
     Route: 065
  2. RISPERDAL [Suspect]
     Active Substance: RISPERIDONE
     Indication: DEPRESSION
     Route: 048
  3. RISPERDAL [Suspect]
     Active Substance: RISPERIDONE
     Indication: DEPRESSION
     Dosage: 1/2 HS AND 1/2 B.D.
     Route: 048
     Dates: start: 20140131, end: 201402
  4. THYROXINE [Concomitant]
     Active Substance: LEVOTHYROXINE
     Indication: HYPOTHYROIDISM
     Route: 048
  5. MORPHINE [Concomitant]
     Active Substance: MORPHINE
     Indication: COMPLEX REGIONAL PAIN SYNDROME
     Dosage: MORE THAN 15 YEARS
     Route: 065
  6. RISPERDAL [Suspect]
     Active Substance: RISPERIDONE
     Indication: DEPRESSION
     Dosage: 2 HS   1AM  1PM
     Route: 048
     Dates: start: 201405
  7. PRISTIQ EXTENDED RELEASE [Concomitant]
     Active Substance: DESVENLAFAXINE SUCCINATE
     Indication: DEPRESSION
     Dosage: ONCE EVERYDAY IN MORNING, STARTED BEFORE 01-MAY-2010,
     Route: 048
  8. ATIVAN [Concomitant]
     Active Substance: LORAZEPAM
     Indication: PAIN
     Dosage: STARTED BEFORE 01-MAY-2010??EVERY SIX HOURS, AS NEEDED FOR ANXIETY
     Route: 048
  9. ESTRACE [Concomitant]
     Active Substance: ESTRADIOL
     Indication: PRODUCT USED FOR UNKNOWN INDICATION
     Route: 067
  10. ALAVERT ALLERGY [Concomitant]
     Active Substance: LORATADINE
     Indication: PRODUCT USED FOR UNKNOWN INDICATION
     Route: 048
  11. MS CONTIN [Concomitant]
     Active Substance: MORPHINE SULFATE
     Indication: PRODUCT USED FOR UNKNOWN INDICATION
     Dosage: MORE THAN 15 YEARS
     Route: 048
  12. WELLBUTRIN [Concomitant]
     Active Substance: BUPROPION HYDROCHLORIDE
     Indication: DEPRESSION
     Dosage: ONCE EVERYDAY IN MORNING, STARTED BEFORE 01-MAY-2010
     Route: 048
  13. ATIVAN [Concomitant]
     Active Substance: LORAZEPAM
     Indication: DEPRESSION
     Dosage: STARTED BEFORE 01-MAY-2010??EVERY SIX HOURS, AS NEEDED FOR ANXIETY
     Route: 048
  14. LORATADINE. [Concomitant]
     Active Substance: LORATADINE
     Indication: MULTIPLE ALLERGIES
     Route: 065
  15. RISPERDAL [Suspect]
     Active Substance: RISPERIDONE
     Indication: DEPRESSION
     Dosage: 1 MG ONCE IN MORNING AND 3 MG AT NIGHT
     Route: 048
     Dates: start: 201402
  16. ATIVAN [Concomitant]
     Active Substance: LORAZEPAM
     Indication: ANXIETY
     Dosage: STARTED BEFORE 01-MAY-2010??EVERY SIX HOURS, AS NEEDED FOR ANXIETY
     Route: 048

REACTIONS (10)
  - Adverse drug reaction [Unknown]
  - Insomnia [Unknown]
  - Parosmia [Unknown]
  - Product use issue [Not Recovered/Not Resolved]
  - Blood prolactin increased [Unknown]
  - Sedation [Unknown]
  - Dysgeusia [Unknown]
  - Micturition disorder [Unknown]
  - Therapy change [Not Recovered/Not Resolved]
  - Pulmonary embolism [Recovering/Resolving]

NARRATIVE: CASE EVENT DATE: 2014
